FAERS Safety Report 5056702-X (Version None)
Quarter: 2006Q2

REPORT INFORMATION
  Report Type: 
  Country: None (occurrence: None)
  Receive Date: 20060616
  Receipt Date: 20060313
  Transmission Date: 20061013
  Serious: No
  Sender: FDA-Public Use
  Company Number: 2006US000550

PATIENT
  Age: 80 Year
  Sex: Male

DRUGS (2)
  1. VESICARE [Suspect]
     Indication: HYPERTONIC BLADDER
     Dosage: ORAL
     Route: 048
     Dates: start: 20060310
  2. VALIUM [Concomitant]

REACTIONS (1)
  - DIZZINESS [None]
